FAERS Safety Report 7765443-7 (Version None)
Quarter: 2011Q3

REPORT INFORMATION
  Report Type: 
  Country: None (occurrence: None)
  Receive Date: 20110921
  Receipt Date: 20110913
  Transmission Date: 20111222
  Serious: Yes (Other)
  Sender: FDA-Public Use
  Company Number: US-AMGEN-USASP2011047397

PATIENT
  Age: 42 Year
  Sex: Female

DRUGS (2)
  1. ENBREL [Suspect]
     Indication: FIBROMYALGIA
  2. ENBREL [Suspect]
     Indication: BEHCET'S SYNDROME
     Dosage: 50 MG, QWK
     Dates: start: 20110826

REACTIONS (6)
  - AFFECT LABILITY [None]
  - ANXIETY [None]
  - DEPRESSED MOOD [None]
  - FRUSTRATION [None]
  - ARTHRALGIA [None]
  - JOINT SWELLING [None]
